FAERS Safety Report 16068865 (Version 1)
Quarter: 2019Q1

REPORT INFORMATION
  Report Type: Spontaneous
  Country: US (occurrence: US)
  Receive Date: 20190313
  Receipt Date: 20190313
  Transmission Date: 20190418
  Serious: Yes (Death, Other)
  Sender: FDA-Public Use
  Company Number: US-GILEAD-2019-0395418

PATIENT
  Age: 72 Year
  Sex: Female
  Weight: 74.1 kg

DRUGS (1)
  1. YESCARTA [Suspect]
     Active Substance: AXICABTAGENE CILOLEUCEL
     Indication: DIFFUSE LARGE B-CELL LYMPHOMA
     Dosage: UNK, ONCE
     Route: 042
     Dates: start: 20181114, end: 20181114

REACTIONS (3)
  - Fungal infection [Fatal]
  - Cytokine release syndrome [Unknown]
  - CAR T-cell-related encephalopathy syndrome [Unknown]

NARRATIVE: CASE EVENT DATE: 20181115
